FAERS Safety Report 8502067-8 (Version None)
Quarter: 2012Q3

REPORT INFORMATION
  Report Type: 
  Country: None (occurrence: None)
  Receive Date: 20120702
  Receipt Date: 20120616
  Transmission Date: 20120928
  Serious: Yes (Hospitalization)
  Sender: FDA-Public Use
  Company Number: TPA2012A03934

PATIENT

DRUGS (2)
  1. PRILOSEC [Suspect]
  2. DEXILANT [Suspect]

REACTIONS (1)
  - DYSPEPSIA [None]
